FAERS Safety Report 18984412 (Version 2)
Quarter: 2024Q1

REPORT INFORMATION
  Report Type: Spontaneous
  Country: CA (occurrence: None)
  Receive Date: 20210308
  Receipt Date: 20240322
  Transmission Date: 20240410
  Serious: Yes (Hospitalization, Disabling)
  Sender: FDA-Public Use
  Company Number: 2021A099010

PATIENT
  Age: 79 Year
  Sex: Male

DRUGS (12)
  1. ROSUVASTATIN [Suspect]
     Active Substance: ROSUVASTATIN
     Route: 048
     Dates: start: 20200530, end: 20200807
  2. METFORMIN [Concomitant]
     Active Substance: METFORMIN HYDROCHLORIDE
     Dosage: 250MG
     Route: 048
  3. EMPAGLIFLOZIN [Concomitant]
     Active Substance: EMPAGLIFLOZIN
     Dosage: 10MG QAM
     Route: 048
  4. ROSUVASTATIN [Concomitant]
     Active Substance: ROSUVASTATIN
     Dosage: 40MG AT SUPPER
     Route: 048
  5. PERINDOPRIL [Concomitant]
     Active Substance: PERINDOPRIL
     Dosage: 2MG QAM
     Route: 048
  6. METOPROLOL [Concomitant]
     Active Substance: METOPROLOL
     Dosage: 25 MG TWO TIMES A DAY
     Route: 048
  7. TICAGRELOR [Concomitant]
     Active Substance: TICAGRELOR
     Dosage: 90 MG TWO TIMES A DAY
     Route: 048
  8. ASPIRIN [Concomitant]
     Active Substance: ASPIRIN
     Dosage: 81 MG QAM
     Route: 048
  9. VITAMIN B12 [Concomitant]
     Active Substance: CYANOCOBALAMIN
     Dosage: L000 MCG QAM
     Route: 048
  10. BASAGLAR [Concomitant]
     Active Substance: INSULIN GLARGINE
     Dosage: 10 UNITS QAM
     Route: 058
  11. NITROGLYCERIN [Concomitant]
     Active Substance: NITROGLYCERIN
     Dosage: AS REQUIRED
  12. MIRABEGRON [Concomitant]
     Active Substance: MIRABEGRON
     Dosage: 50MG QAM
     Route: 048

REACTIONS (6)
  - Dropped head syndrome [Recovering/Resolving]
  - Dysphagia [Recovering/Resolving]
  - Gait disturbance [Recovering/Resolving]
  - Gastrointestinal tube insertion [Recovering/Resolving]
  - Asthenia [Recovering/Resolving]
  - Muscular weakness [Recovering/Resolving]

NARRATIVE: CASE EVENT DATE: 20200630
